FAERS Safety Report 4655088-X (Version None)
Quarter: 2005Q2

REPORT INFORMATION
  Report Type: 
  Country: None (occurrence: None)
  Receive Date: 20050503
  Receipt Date: 20050426
  Transmission Date: 20051028
  Serious: Yes (Hospitalization)
  Sender: FDA-Public Use
  Company Number: 2005SE02497

PATIENT
  Age: 65 Year
  Sex: Male
  Weight: 69 kg

DRUGS (19)
  1. BLOPRESS [Suspect]
     Indication: HYPERTENSION
     Dosage: 4 MG QD PO
     Route: 048
     Dates: start: 20000101
  2. NO MATCH [Suspect]
     Indication: GLUCOSE TOLERANCE IMPAIRED
     Dates: start: 20031127
  3. MARZULENE S [Suspect]
     Dosage: 2 G QD PO
     Route: 048
     Dates: start: 19970101
  4. ULCERLMIN [Suspect]
     Dosage: 2 G QD PO
     Route: 048
     Dates: start: 19970101
  5. STROCAIN [Suspect]
     Dosage: 0.4 G QD PO
     Route: 048
     Dates: start: 19970101
  6. GLYCYRON [Suspect]
     Indication: HEPATIC FUNCTION ABNORMAL
     Dosage: 6 DF QD PO
     Route: 048
     Dates: start: 19980101, end: 20040129
  7. PROHEPARUM [Suspect]
     Indication: HEPATIC FUNCTION ABNORMAL
     Dosage: 3 DF QD PO
     Route: 048
     Dates: start: 19980101, end: 20040129
  8. DEPAS [Suspect]
     Indication: INSOMNIA
     Dosage: 1.5 MG QD PO
     Route: 048
     Dates: start: 19990101, end: 20040129
  9. ROHYPNOL [Suspect]
     Indication: INSOMNIA
     Dosage: 2 MG QD PO
     Route: 048
     Dates: start: 19990101, end: 20040129
  10. SUNRYTHM [Suspect]
     Indication: TACHYARRHYTHMIA
     Dosage: 150 MG QD PO
     Route: 048
     Dates: start: 19980101
  11. BUFFERIN [Suspect]
     Indication: THROMBOSIS PROPHYLAXIS
     Dosage: 81 MG QD PO
     Route: 048
     Dates: start: 20000101, end: 20040216
  12. GRANDAXIN [Suspect]
     Dosage: 150 MG QD PO
     Route: 048
     Dates: start: 20000101
  13. CONIEL [Suspect]
     Indication: HYPERTENSION
     Dosage: 4 MG QD PO
     Route: 048
     Dates: start: 20020101
  14. NO MATCH [Suspect]
     Indication: BENIGN PROSTATIC HYPERPLASIA
     Dosage: 6 DF QD PO
     Route: 048
     Dates: start: 20000101
  15. ZESULAN [Suspect]
     Indication: DERMATITIS
     Dosage: 6 MG QD PO
     Route: 048
  16. WAKADENIN-F [Suspect]
     Indication: DERMATITIS
     Dosage: 20 MG QD PO
     Route: 048
  17. EXELDERM [Suspect]
     Indication: TINEA BLANCA
  18. WARFARIN SODIUM [Suspect]
     Indication: THROMBOSIS PROPHYLAXIS
     Dosage: 1.5 MG QD PO
     Route: 048
     Dates: start: 20040201
  19. PANALDINE [Suspect]
     Indication: THROMBOSIS PROPHYLAXIS
     Dosage: 200 MG QD PO
     Route: 048
     Dates: start: 20040201

REACTIONS (2)
  - CEREBRAL INFARCTION [None]
  - GLUCOSE TOLERANCE IMPAIRED [None]
